FAERS Safety Report 17354052 (Version 1)
Quarter: 2020Q1

REPORT INFORMATION
  Report Type: Spontaneous
  Country: US (occurrence: US)
  Receive Date: 20200131
  Receipt Date: 20200131
  Transmission Date: 20200409
  Serious: No
  Sender: FDA-Public Use
  Company Number: US-GLENMARK PHARMACEUTICALS-2019GMK045156

PATIENT

DRUGS (4)
  1. LEUPROLIDE ACETATE. [Suspect]
     Active Substance: LEUPROLIDE ACETATE
     Indication: ENDOMETRIOSIS
     Dosage: UNK (LUPANETA PACK(INJECTION)(LEUPROLIDE ACETATE DEPOT)
     Route: 065
  2. LUPRON [Suspect]
     Active Substance: LEUPROLIDE ACETATE
     Indication: ENDOMETRIOSIS
     Dosage: UNK (LUPRON (LEUPROLIDE ACETATE DEPOT))
     Route: 065
  3. NORETHINDRONE ACETATE TABLETS USP, 5 MG [Suspect]
     Active Substance: NORETHINDRONE ACETATE
     Indication: ENDOMETRIOSIS
     Dosage: UNK
     Route: 065
  4. LUPRON [Suspect]
     Active Substance: LEUPROLIDE ACETATE
     Dosage: UNK (LUPRON (LUPRON DEPOT(LEUPROLIDE ACETATE DEPOT)
     Route: 065

REACTIONS (2)
  - Drug ineffective [Unknown]
  - Endometriosis [Unknown]
